FAERS Safety Report 11782101 (Version 3)
Quarter: 2015Q4

REPORT INFORMATION
  Report Type: Report from Study
  Country: BR (occurrence: BR)
  Receive Date: 20151127
  Receipt Date: 20151216
  Transmission Date: 20160305
  Serious: Yes (Hospitalization, Other)
  Sender: FDA-Public Use
  Company Number: BR-ABBVIE-15K-020-1507324-00

PATIENT
  Age: 54 Year
  Sex: Female
  Weight: 88 kg

DRUGS (9)
  1. AZATHIOPRINE. [Concomitant]
     Active Substance: AZATHIOPRINE
     Indication: CROHN^S DISEASE
     Route: 048
  2. HUMIRA [Suspect]
     Active Substance: ADALIMUMAB
     Route: 058
     Dates: start: 2015, end: 20151204
  3. DEPAKENE [Concomitant]
     Active Substance: VALPROIC ACID
     Indication: SEIZURE
     Route: 048
     Dates: start: 2011
  4. FLUOXETINE [Concomitant]
     Active Substance: FLUOXETINE HYDROCHLORIDE
     Indication: DEPRESSION
     Route: 048
     Dates: start: 2010
  5. HIGROTON [Concomitant]
     Active Substance: CHLORTHALIDONE
     Indication: HYPERTENSION
     Route: 048
  6. HUMIRA [Suspect]
     Active Substance: ADALIMUMAB
     Dosage: LOADING DOSE, WEEK TWO
     Route: 058
     Dates: start: 201511, end: 201511
  7. RIVOTRIL [Concomitant]
     Active Substance: CLONAZEPAM
     Indication: ANXIETY
     Route: 048
     Dates: start: 2010
  8. HUMIRA [Suspect]
     Active Substance: ADALIMUMAB
     Indication: CROHN^S DISEASE
     Dosage: LOADING DOSE, WEEK ZERO
     Route: 058
     Dates: start: 20151021, end: 20151021
  9. LOSARTAN. [Concomitant]
     Active Substance: LOSARTAN
     Indication: HYPERTENSION
     Route: 048

REACTIONS (11)
  - Fatigue [Not Recovered/Not Resolved]
  - Hypertension [Unknown]
  - Lymphadenopathy [Not Recovered/Not Resolved]
  - Post procedural complication [Unknown]
  - Gastrointestinal motility disorder [Not Recovered/Not Resolved]
  - Procedural hypertension [Unknown]
  - Incarcerated hernia [Not Recovered/Not Resolved]
  - Fistula [Unknown]
  - Stress [Not Recovered/Not Resolved]
  - Constipation [Unknown]
  - Hypophagia [Unknown]

NARRATIVE: CASE EVENT DATE: 2015
